FAERS Safety Report 18743582 (Version 2)
Quarter: 2021Q1

REPORT INFORMATION
  Report Type: Report from Study
  Country: CA (occurrence: CA)
  Receive Date: 20210115
  Receipt Date: 20210312
  Transmission Date: 20210419
  Serious: Yes (Other)
  Sender: FDA-Public Use
  Company Number: CA-BAUSCH-BL-2020-024771

PATIENT
  Age: 41 Year
  Sex: Female

DRUGS (3)
  1. SILIQ [Suspect]
     Active Substance: BRODALUMAB
     Dosage: 210 MG/ 1.5 ML
     Route: 058
     Dates: start: 2020, end: 2021
  2. SILIQ [Suspect]
     Active Substance: BRODALUMAB
     Indication: PSORIASIS
     Dosage: 210 MG/ 1.5 ML, WEEKLY?WEEK 0,1,2
     Route: 058
     Dates: start: 20200824, end: 20200907
  3. NAPROXEN. [Concomitant]
     Active Substance: NAPROXEN
     Indication: PRODUCT USED FOR UNKNOWN INDICATION

REACTIONS (10)
  - Decreased appetite [Unknown]
  - Pain [Not Recovered/Not Resolved]
  - Diarrhoea [Recovering/Resolving]
  - Psoriasis [Unknown]
  - Rash [Unknown]
  - Injection site erythema [Not Recovered/Not Resolved]
  - Headache [Not Recovered/Not Resolved]
  - Ill-defined disorder [Unknown]
  - Fatigue [Not Recovered/Not Resolved]
  - Nausea [Unknown]

NARRATIVE: CASE EVENT DATE: 2020
